FAERS Safety Report 23517131 (Version 1)
Quarter: 2024Q1

REPORT INFORMATION
  Report Type: Spontaneous
  Country: CN (occurrence: CN)
  Receive Date: 20240213
  Receipt Date: 20240213
  Transmission Date: 20240409
  Serious: Yes (Hospitalization)
  Sender: FDA-Public Use
  Company Number: CN-Jiangsu Hengrui Medicine Co., Ltd.-2153103

PATIENT
  Age: 10 Year
  Sex: Male
  Weight: 60 kg

DRUGS (1)
  1. CISATRACURIUM BESYLATE [Suspect]
     Active Substance: CISATRACURIUM BESYLATE
     Dates: start: 20240125, end: 20240125

REACTIONS (1)
  - Breath sounds absent [Recovering/Resolving]

NARRATIVE: CASE EVENT DATE: 20240125
